FAERS Safety Report 4491861-9 (Version None)
Quarter: 2004Q4

REPORT INFORMATION
  Report Type: 
  Country: None (occurrence: None)
  Receive Date: 20041028
  Receipt Date: 20041028
  Transmission Date: 20050328
  Serious: Yes (Life-Threatening)
  Sender: FDA-Public Use
  Company Number: None

PATIENT
  Age: 79 Year
  Sex: Female
  Weight: 90 kg

DRUGS (6)
  1. ENOXAPARIN SODIUM [Suspect]
     Indication: PULMONARY EMBOLISM
     Dosage: 90 MG BID SUBCUTANEOUS
     Route: 058
     Dates: start: 20040201, end: 20040203
  2. AMOXICILLIN AND CLAVULANATE POTASSIUM [Concomitant]
  3. CLOPIDOGREL [Concomitant]
  4. GUAIFENESIN LA [Concomitant]
  5. CETRIAXONE [Concomitant]
  6. ASPIRIN [Concomitant]

REACTIONS (7)
  - ABDOMINAL PAIN [None]
  - FAECALOMA [None]
  - HAEMATOMA [None]
  - HYPOTENSION [None]
  - MUSCLE HAEMORRHAGE [None]
  - RESPIRATORY FAILURE [None]
  - TACHYCARDIA [None]
